FAERS Safety Report 8226278-4 (Version None)
Quarter: 2012Q1

REPORT INFORMATION
  Report Type: 
  Country: None (occurrence: None)
  Receive Date: 20120321
  Receipt Date: 20120315
  Transmission Date: 20120608
  Serious: Yes (Other)
  Sender: FDA-Public Use
  Company Number: PHHY2010US56049

PATIENT
  Sex: Female

DRUGS (7)
  1. TRAMADOL HCL [Concomitant]
     Dosage: 50 MG, BID
  2. MEDROL [Concomitant]
  3. EXTAVIA [Suspect]
     Indication: MULTIPLE SCLEROSIS
     Dosage: 0.25 MG, QOD
     Route: 058
     Dates: start: 20100307
  4. QUINAPRIL HYDROCHLORIDE AND HYDROCHLOROTHIAZIDE [Concomitant]
     Dosage: 1 DF, QD
  5. SOLU-MEDROL [Concomitant]
  6. PROTONIX [Concomitant]
  7. VITAMIN D [Concomitant]
     Dosage: 5000 UKN, UNK

REACTIONS (7)
  - PARAESTHESIA [None]
  - MULTIPLE SCLEROSIS RELAPSE [None]
  - HYPOAESTHESIA [None]
  - PAIN [None]
  - FEELING ABNORMAL [None]
  - EXTREMITY CONTRACTURE [None]
  - BALANCE DISORDER [None]
